FAERS Safety Report 9586335 (Version 1)
Quarter: 2013Q4

REPORT INFORMATION
  Report Type: Report from Study
  Country: CA (occurrence: CA)
  Receive Date: 20131003
  Receipt Date: 20131003
  Transmission Date: 20140711
  Serious: Yes (Hospitalization, Other)
  Sender: FDA-Public Use
  Company Number: PHHY2013CA109871

PATIENT
  Sex: Female

DRUGS (4)
  1. ACLASTA [Suspect]
     Indication: OSTEOPOROSIS
     Dosage: UNK
     Route: 042
     Dates: start: 20090910
  2. ACLASTA [Suspect]
     Dosage: UNK
     Route: 042
     Dates: start: 20101025
  3. ACLASTA [Suspect]
     Dosage: UNK
     Route: 042
     Dates: start: 20111020
  4. ACLASTA [Suspect]
     Dosage: UNK
     Route: 042
     Dates: start: 20121017

REACTIONS (3)
  - Fracture [Unknown]
  - Arthralgia [Unknown]
  - Bone loss [Unknown]
